FAERS Safety Report 6381966-X (Version None)
Quarter: 2009Q3

REPORT INFORMATION
  Report Type: 
  Country: None (occurrence: None)
  Receive Date: 20090930
  Receipt Date: 20090918
  Transmission Date: 20100115
  Serious: Yes (Death)
  Sender: FDA-Public Use
  Company Number: DE-ROCHE-658075

PATIENT
  Age: 32 Year
  Sex: Male

DRUGS (13)
  1. DACLIZUMAB [Suspect]
     Indication: GRAFT VERSUS HOST DISEASE
     Dosage: ON DAY 1-5
     Route: 065
  2. DACLIZUMAB [Suspect]
     Dosage: UNTIL DAY 28
     Route: 065
  3. MYCOPHENOLATE MOFETIL [Suspect]
     Indication: GRAFT VERSUS HOST DISEASE
     Route: 065
  4. CSA [Suspect]
     Indication: PROPHYLAXIS AGAINST GRAFT VERSUS HOST DISEASE
     Dosage: ACCORDING PLASMA LEVELS
     Route: 065
  5. CSA [Suspect]
     Dosage: DOSE ESCALATION
     Route: 065
  6. PREDNISOLONE [Suspect]
     Indication: PROPHYLAXIS AGAINST GRAFT VERSUS HOST DISEASE
     Dosage: ON DAY 7-13
     Route: 065
  7. PREDNISOLONE [Suspect]
     Dosage: ON DAY 14-24
     Route: 065
  8. PREDNISOLONE [Suspect]
     Dosage: TAPERED
     Route: 065
  9. PREDNISOLONE [Suspect]
     Dosage: DOSE ESCALATION
     Route: 065
  10. PREDNISOLONE [Suspect]
     Dosage: STEROID TAPERED
     Route: 065
  11. METHYLPREDNISOLONE 4MG TAB [Suspect]
     Indication: GRAFT VERSUS HOST DISEASE
     Route: 065
  12. METHYLPREDNISOLONE 4MG TAB [Suspect]
     Dosage: TAPERED
     Route: 065
  13. CYCLOPHOSPHAMIDE [Concomitant]
     Indication: THERAPEUTIC PROCEDURE

REACTIONS (3)
  - CEREBRAL TOXOPLASMOSIS [None]
  - CYTOMEGALOVIRUS INFECTION [None]
  - GRAFT VERSUS HOST DISEASE [None]
